FAERS Safety Report 14923841 (Version 2)
Quarter: 2018Q3

REPORT INFORMATION
  Report Type: Spontaneous
  Country: JP (occurrence: JP)
  Receive Date: 20180522
  Receipt Date: 20180820
  Transmission Date: 20181010
  Serious: Yes (Life-Threatening, Hospitalization, Other)
  Sender: FDA-Public Use
  Company Number: JP-PFIZER INC-2018200876

PATIENT
  Age: 10 Year
  Sex: Male
  Weight: 24.6 kg

DRUGS (6)
  1. GENOTROPIN [Suspect]
     Active Substance: SOMATROPIN
     Dosage: 0.8 MG, 1X/DAY, 5 TIMES/WEEK
     Route: 058
     Dates: start: 20170420, end: 20170726
  2. GENOTROPIN [Suspect]
     Active Substance: SOMATROPIN
     Indication: GROWTH HORMONE DEFICIENCY
     Dosage: 0.3 MG, 1X/DAY,6 TIMES/WEEK
     Route: 058
     Dates: start: 20120618, end: 20130721
  3. GENOTROPIN [Suspect]
     Active Substance: SOMATROPIN
     Dosage: 0.5 MG, 1X/DAY, 6 TIMES/WEEK
     Route: 058
     Dates: start: 20150413, end: 20160522
  4. GENOTROPIN [Suspect]
     Active Substance: SOMATROPIN
     Dosage: 0.9 MG, 1X/DAY, 5 TIMES/WEEK
     Route: 058
     Dates: start: 20170727, end: 20180515
  5. GENOTROPIN [Suspect]
     Active Substance: SOMATROPIN
     Indication: BODY HEIGHT BELOW NORMAL
     Dosage: 0.4 MG, 1X/DAY, 6 TIMES/WEEK
     Route: 058
     Dates: start: 20130722, end: 20150412
  6. GENOTROPIN [Suspect]
     Active Substance: SOMATROPIN
     Dosage: 0.6 MG, 1X/DAY, 6 TIMES/WEEK
     Route: 058
     Dates: start: 20160523, end: 20170419

REACTIONS (2)
  - Diabetes mellitus [Recovered/Resolved]
  - Diabetic ketoacidosis [Recovered/Resolved]

NARRATIVE: CASE EVENT DATE: 20180515
